FAERS Safety Report 24855483 (Version 1)
Quarter: 2025Q1

REPORT INFORMATION
  Report Type: Spontaneous
  Country: US (occurrence: US)
  Receive Date: 20250117
  Receipt Date: 20250117
  Transmission Date: 20250409
  Serious: No
  Sender: TEVA
  Company Number: US-TEVA-VS-3282661

PATIENT
  Sex: Female
  Weight: 89.8 kg

DRUGS (14)
  1. LEVOTHYROXINE [Suspect]
     Active Substance: LEVOTHYROXINE
     Indication: Product used for unknown indication
     Route: 065
  2. LENVIMA [Suspect]
     Active Substance: LENVATINIB
     Indication: Endometrial neoplasm
     Route: 048
     Dates: start: 20240803
  3. OMEGA-3 ACIDS [Concomitant]
     Active Substance: OMEGA-3 FATTY ACIDS
     Indication: Product used for unknown indication
  4. HYDROCHLOROTHIAZIDE [Concomitant]
     Active Substance: HYDROCHLOROTHIAZIDE
     Indication: Product used for unknown indication
  5. LOSARTAN [Concomitant]
     Active Substance: LOSARTAN
     Indication: Product used for unknown indication
  6. POTASSIUM [Concomitant]
     Active Substance: POTASSIUM
     Indication: Product used for unknown indication
  7. AMLODIPINE [Concomitant]
     Active Substance: AMLODIPINE BESYLATE
     Indication: Product used for unknown indication
  8. VITAMIN B12 [Concomitant]
     Active Substance: CYANOCOBALAMIN
     Indication: Product used for unknown indication
  9. DIPHENHYDRAMINE [Concomitant]
     Active Substance: DIPHENHYDRAMINE
     Indication: Product used for unknown indication
  10. EMEND [Concomitant]
     Active Substance: APREPITANT
     Indication: Product used for unknown indication
  11. HYDROCODONE [Concomitant]
     Active Substance: HYDROCODONE
     Indication: Product used for unknown indication
  12. KEYTRUDA [Concomitant]
     Active Substance: PEMBROLIZUMAB
     Indication: Product used for unknown indication
  13. ONDANSETRON [Concomitant]
     Active Substance: ONDANSETRON
     Indication: Product used for unknown indication
  14. SENNA [Concomitant]
     Active Substance: SENNOSIDES
     Indication: Product used for unknown indication

REACTIONS (8)
  - Abdominal pain upper [Recovering/Resolving]
  - Dyspepsia [Recovering/Resolving]
  - Dyspepsia [Recovering/Resolving]
  - Vomiting [Recovering/Resolving]
  - Blood pressure measurement [Recovering/Resolving]
  - Nausea [Recovering/Resolving]
  - Hiccups [Recovering/Resolving]
  - Asthenia [Recovering/Resolving]

NARRATIVE: CASE EVENT DATE: 20240101
